FAERS Safety Report 4297616-2 (Version None)
Quarter: 2004Q1

REPORT INFORMATION
  Report Type: 
  Country: None (occurrence: None)
  Receive Date: 20040213
  Receipt Date: 20040203
  Transmission Date: 20041129
  Serious: Yes (Hospitalization)
  Sender: FDA-Public Use
  Company Number: JP-JNJFOC-20040201178

PATIENT
  Age: 67 Year
  Sex: Female
  Weight: 51 kg

DRUGS (10)
  1. REMICADE [Suspect]
     Indication: RHEUMATOID ARTHRITIS
     Dosage: 3 MG/KG, 1 IN 1 AS NECESSARY, INTRAVENOUS DRIP
     Route: 041
     Dates: start: 20031008, end: 20031008
  2. REMICADE [Suspect]
     Indication: RHEUMATOID ARTHRITIS
     Dosage: 3 MG/KG, 1 IN 1 AS NECESSARY, INTRAVENOUS DRIP
     Route: 041
     Dates: start: 20031106, end: 20031106
  3. PREDNISOLONE (TABLETS) PREDNISOLONE [Concomitant]
  4. RHEUMATREX (CAPSULES) METHOTREXATE SODIUM [Concomitant]
     Dosage: SEE IMAGE
     Route: 048
  5. AZULFIDINE [Concomitant]
  6. INFREE (INDOMETACIN) CAPSULES [Concomitant]
     Route: 048
  7. FOLIAMIN (FOLIC ACID) TABLETS [Concomitant]
     Route: 048
  8. ALFAROL (ALFACALCIDOL) CAPSULES [Concomitant]
     Route: 048
  9. ASPARA-CA (ASPARTATE CALCIUM) TABLETS [Concomitant]
     Route: 048
  10. GASTROM (ECABET MONOSODIUM) GRANULES [Concomitant]
     Route: 048

REACTIONS (5)
  - LIVER DISORDER [None]
  - MUSCULOSKELETAL PAIN [None]
  - MYCOBACTERIUM AVIUM COMPLEX INFECTION [None]
  - PNEUMONIA BACTERIAL [None]
  - TUBERCULOSIS [None]
